FAERS Safety Report 15365761 (Version 1)
Quarter: 2018Q3

REPORT INFORMATION
  Report Type: Spontaneous
  Country: US (occurrence: US)
  Receive Date: 20180831
  Receipt Date: 20180831
  Transmission Date: 20181010
  Serious: Yes (Hospitalization)
  Sender: FDA-Public Use
  Company Number: None

PATIENT
  Sex: Female
  Weight: 45.4 kg

DRUGS (16)
  1. E. COLI L?ASPARAGINASE [Concomitant]
  2. LEUCOVORIN. [Concomitant]
     Active Substance: LEUCOVORIN
  3. NEULASTA [Concomitant]
     Active Substance: PEGFILGRASTIM
  4. VINCRISTINE [Concomitant]
     Active Substance: VINCRISTINE
  5. THIOGUARINE [Concomitant]
  6. METHOTREXATE 36 MG [Suspect]
     Active Substance: METHOTREXATE
     Dates: end: 20090405
  7. DEXAMETHASONE 140MG [Suspect]
     Active Substance: DEXAMETHASONE
     Dates: end: 20090407
  8. HYDROCORTISONE. [Concomitant]
     Active Substance: HYDROCORTISONE
  9. MERCAPTOPURINE. [Concomitant]
     Active Substance: MERCAPTOPURINE
  10. ONCASPAR [Suspect]
     Active Substance: PEGASPARGASE
     Dosage: 1975 IU
     Dates: end: 20090312
  11. DOXORUBICIN [Concomitant]
     Active Substance: DOXORUBICIN
  12. CYCLOPHOSPHAMIDE. [Concomitant]
     Active Substance: CYCLOPHOSPHAMIDE
  13. FILGRASTIM [Concomitant]
     Active Substance: FILGRASTIM
  14. VINCRISTINE SULFATE. [Suspect]
     Active Substance: VINCRISTINE SULFATE
     Dates: end: 20090415
  15. CYTARABINE 70 MG [Suspect]
     Active Substance: CYTARABINE
     Dates: end: 20090309
  16. DTOPOSIDE [Concomitant]

REACTIONS (3)
  - Acute myeloid leukaemia [None]
  - Disease recurrence [None]
  - Pancytopenia [None]

NARRATIVE: CASE EVENT DATE: 20180802
